FAERS Safety Report 11709750 (Version 1)
Quarter: 2015Q4

REPORT INFORMATION
  Report Type: Spontaneous
  Country: US (occurrence: US)
  Receive Date: 20151104
  Receipt Date: 20151104
  Transmission Date: 20160304
  Serious: No
  Sender: FDA-Public Use
  Company Number: US-ELI_LILLY_AND_COMPANY-US201103002352

PATIENT
  Age: 77 Year
  Sex: Female

DRUGS (3)
  1. DILTIAZEM [Concomitant]
     Active Substance: DILTIAZEM
     Indication: BLOOD PRESSURE MEASUREMENT
  2. FORTEO [Suspect]
     Active Substance: TERIPARATIDE
     Indication: OSTEOPOROSIS
     Dosage: 20 UG, DAILY (1/D)
     Dates: start: 20110303
  3. FORTEO [Suspect]
     Active Substance: TERIPARATIDE
     Dosage: 20 UG, QD

REACTIONS (2)
  - Blood pressure increased [Not Recovered/Not Resolved]
  - Hot flush [Unknown]

NARRATIVE: CASE EVENT DATE: 20110304
